FAERS Safety Report 4838666-4 (Version None)
Quarter: 2005Q4

REPORT INFORMATION
  Report Type: 
  Country: None (occurrence: None)
  Receive Date: 20051129
  Receipt Date: 20050819
  Transmission Date: 20060501
  Serious: No
  Sender: FDA-Public Use
  Company Number: US-GLAXOSMITHKLINE-A0570999A

PATIENT
  Age: 68 Year
  Sex: Female

DRUGS (2)
  1. COMMIT [Suspect]
     Dates: start: 20050819, end: 20050819
  2. WELLBUTRIN [Concomitant]

REACTIONS (3)
  - CHEST DISCOMFORT [None]
  - MALAISE [None]
  - THROAT TIGHTNESS [None]
